FAERS Safety Report 4724224-9 (Version None)
Quarter: 2005Q3

REPORT INFORMATION
  Report Type: 
  Country: None (occurrence: None)
  Receive Date: 20050726
  Receipt Date: 20050720
  Transmission Date: 20060218
  Serious: Yes (Life-Threatening, Hospitalization)
  Sender: FDA-Public Use
  Company Number: PHBS2005JP10449

PATIENT
  Age: 24 Year
  Sex: Female

DRUGS (6)
  1. VOLTAREN [Suspect]
     Indication: ARTHRALGIA
     Dosage: 25 MG/DAY
     Route: 048
     Dates: start: 20050404, end: 20050411
  2. VOLTAREN [Suspect]
     Dosage: 50 MG/DAY
     Route: 054
     Dates: start: 20050404, end: 20050411
  3. CRAVIT [Concomitant]
     Dosage: 300 MG/DAY
     Route: 048
     Dates: start: 20050404, end: 20050411
  4. PELEX [Concomitant]
     Dosage: 2 G/DAY
     Route: 048
     Dates: start: 20050404, end: 20050411
  5. ASPIRIN [Concomitant]
     Dosage: 0.8 G/DAY
     Route: 048
     Dates: start: 20050404, end: 20050411
  6. CODEINE PHOSPHATE [Concomitant]
     Dosage: 0.6 G/DAY
     Route: 048
     Dates: start: 20050404, end: 20050411

REACTIONS (9)
  - C-REACTIVE PROTEIN INCREASED [None]
  - CONJUNCTIVAL HYPERAEMIA [None]
  - MUCOSAL EROSION [None]
  - NEUTROPENIA [None]
  - NEUTROPHIL COUNT DECREASED [None]
  - RASH GENERALISED [None]
  - SKIN TEST POSITIVE [None]
  - STEVENS-JOHNSON SYNDROME [None]
  - WHITE BLOOD CELL COUNT DECREASED [None]
